FAERS Safety Report 10675738 (Version 2)
Quarter: 2017Q1

REPORT INFORMATION
  Report Type: Spontaneous
  Country: ES (occurrence: ES)
  Receive Date: 20141224
  Receipt Date: 20170213
  Transmission Date: 20170428
  Serious: Yes (Other)
  Sender: FDA-Public Use
  Company Number: ES-ABBVIE-14K-144-1323510-00

PATIENT
  Age: 82 Year
  Sex: Female
  Weight: 55 kg

DRUGS (10)
  1. LEFLUNOMIDA [Suspect]
     Active Substance: LEFLUNOMIDE
     Route: 065
     Dates: start: 20110705, end: 20120703
  2. HUMIRA [Suspect]
     Active Substance: ADALIMUMAB
     Route: 058
     Dates: start: 20130528, end: 20130909
  3. HUMIRA [Suspect]
     Active Substance: ADALIMUMAB
     Indication: RHEUMATOID ARTHRITIS
     Route: 058
     Dates: start: 200506, end: 20080527
  4. PREDNISONA [Suspect]
     Active Substance: PREDNISONE
     Indication: RHEUMATOID ARTHRITIS
     Route: 065
     Dates: start: 20080527
  5. PREDNISONA [Suspect]
     Active Substance: PREDNISONE
     Route: 065
     Dates: start: 20110705, end: 20120703
  6. LEFLUNOMIDA [Suspect]
     Active Substance: LEFLUNOMIDE
     Indication: PRODUCT USED FOR UNKNOWN INDICATION
     Route: 065
     Dates: start: 20091123
  7. HUMIRA [Suspect]
     Active Substance: ADALIMUMAB
     Route: 058
     Dates: start: 20110705, end: 20120703
  8. ENBREL [Suspect]
     Active Substance: ETANERCEPT
     Indication: RHEUMATOID ARTHRITIS
     Route: 065
     Dates: start: 20080527, end: 20081015
  9. TOCILIZUMAB [Suspect]
     Active Substance: TOCILIZUMAB
     Indication: PRODUCT USED FOR UNKNOWN INDICATION
     Route: 065
     Dates: start: 20100603
  10. RITUXIMAB [Suspect]
     Active Substance: RITUXIMAB
     Indication: RHEUMATOID ARTHRITIS
     Route: 065
     Dates: start: 20081104, end: 20090922

REACTIONS (18)
  - Toxicity to various agents [Recovered/Resolved]
  - Pyoderma gangrenosum [Recovered/Resolved]
  - Rash [Unknown]
  - Cardiac failure [Recovered/Resolved]
  - Bone marrow oedema [Unknown]
  - Infusion related reaction [Unknown]
  - Ventricular fibrillation [Recovered/Resolved with Sequelae]
  - Rheumatoid arthritis [Recovered/Resolved]
  - Psoriasis [Unknown]
  - Tendonitis [Recovered/Resolved]
  - Arthralgia [Recovered/Resolved]
  - Rheumatoid arthritis [Recovered/Resolved]
  - Drug ineffective [Unknown]
  - Pustular psoriasis [Recovered/Resolved]
  - Neck pain [Recovered/Resolved]
  - Drug ineffective [Unknown]
  - Headache [Unknown]
  - Hyperhidrosis [Unknown]

NARRATIVE: CASE EVENT DATE: 200805
